FAERS Safety Report 5757659-6 (Version None)
Quarter: 2008Q2

REPORT INFORMATION
  Report Type: 
  Country: None (occurrence: None)
  Receive Date: 20080603
  Receipt Date: 20080522
  Transmission Date: 20081010
  Serious: Yes (Disabling)
  Sender: FDA-Public Use
  Company Number: GB-MERCK-0805GBR00135

PATIENT
  Age: 53 Year
  Sex: Male
  Weight: 54 kg

DRUGS (6)
  1. FOSAMAX [Suspect]
     Indication: OSTEOPOROSIS
     Route: 048
     Dates: end: 20080101
  2. FOSAMAX [Suspect]
     Route: 048
     Dates: start: 20080101, end: 20080101
  3. TESTOSTERONE [Concomitant]
     Indication: ERECTILE DYSFUNCTION
     Route: 065
  4. TESTOSTERONE [Concomitant]
     Indication: OSTEOPOROSIS
     Route: 065
  5. SILDENAFIL CITRATE [Concomitant]
     Indication: ERECTILE DYSFUNCTION
     Route: 048
  6. SIMVASTATIN [Concomitant]
     Indication: HYPERCHOLESTEROLAEMIA
     Route: 048

REACTIONS (1)
  - VITREOUS FLOATERS [None]
